FAERS Safety Report 6653851-7 (Version None)
Quarter: 2010Q1

REPORT INFORMATION
  Report Type: 
  Country: None (occurrence: None)
  Receive Date: 20100326
  Receipt Date: 20100318
  Transmission Date: 20100710
  Serious: Yes (Death, Hospitalization)
  Sender: FDA-Public Use
  Company Number: B0642954A

PATIENT
  Sex: Female
  Weight: 47 kg

DRUGS (3)
  1. PAROXETINE HCL [Suspect]
     Indication: DEPRESSION
  2. ACETAMINOPHEN [Suspect]
  3. PHENOBARBITAL TAB [Suspect]

REACTIONS (10)
  - COMPLETED SUICIDE [None]
  - DRUG LEVEL INCREASED [None]
  - DRUG TOXICITY [None]
  - LIVER DISORDER [None]
  - LIVER INJURY [None]
  - OVERDOSE [None]
  - PLEURAL EFFUSION [None]
  - PULMONARY OEDEMA [None]
  - SCAR [None]
  - SEROTONIN SYNDROME [None]
